FAERS Safety Report 15159948 (Version 1)
Quarter: 2018Q3

REPORT INFORMATION
  Report Type: Report from Study
  Country: CN (occurrence: CN)
  Receive Date: 20180718
  Receipt Date: 20180718
  Transmission Date: 20181010
  Serious: Yes (Hospitalization)
  Sender: FDA-Public Use
  Company Number: CN-SA-2018SA185227

PATIENT
  Age: 42 Year
  Sex: Male
  Weight: 64 kg

DRUGS (1)
  1. ANTI?THYMOCYTE GLOBULIN (RABBIT) NOS [Suspect]
     Active Substance: LAPINE T-LYMPHOCYTE IMMUNE GLOBULIN
     Dosage: UNK
     Dates: start: 20170303, end: 20170305

REACTIONS (1)
  - Ureteric fistula [Recovering/Resolving]

NARRATIVE: CASE EVENT DATE: 20170325
